FAERS Safety Report 18468875 (Version 39)
Quarter: 2024Q1

REPORT INFORMATION
  Report Type: Report from Study
  Country: CL (occurrence: CL)
  Receive Date: 20201105
  Receipt Date: 20240331
  Transmission Date: 20240410
  Serious: Yes (Life-Threatening, Hospitalization, Disabling, Other)
  Sender: FDA-Public Use
  Company Number: CL-TAKEDA-CL202029882

PATIENT
  Age: 10 Year
  Sex: Male
  Weight: 43 kg

DRUGS (17)
  1. IDURSULFASE [Suspect]
     Active Substance: IDURSULFASE
     Indication: Mucopolysaccharidosis II
     Dosage: UNK UNK, 1/WEEK
     Route: 042
     Dates: start: 20200908, end: 20200908
  2. IDURSULFASE [Suspect]
     Active Substance: IDURSULFASE
     Indication: Enzyme supplementation
     Dosage: UNK UNK, 1/WEEK
     Route: 042
     Dates: start: 20200928, end: 20200928
  3. IDURSULFASE [Suspect]
     Active Substance: IDURSULFASE
     Dosage: UNK UNK, 1/WEEK
     Route: 042
  4. IDURSULFASE [Suspect]
     Active Substance: IDURSULFASE
     Dosage: UNK UNK, 1/WEEK
     Route: 042
  5. IDURSULFASE [Suspect]
     Active Substance: IDURSULFASE
     Dosage: UNK UNK, 1/WEEK
     Route: 042
  6. IDURSULFASE [Suspect]
     Active Substance: IDURSULFASE
     Dosage: UNK UNK, 1/WEEK
     Route: 042
  7. IDURSULFASE [Suspect]
     Active Substance: IDURSULFASE
     Dosage: UNK UNK, 1/WEEK
     Route: 042
  8. IDURSULFASE [Suspect]
     Active Substance: IDURSULFASE
     Dosage: UNK UNK, 1/WEEK
     Route: 042
  9. IDURSULFASE [Suspect]
     Active Substance: IDURSULFASE
     Dosage: UNK UNK, 1/WEEK
     Route: 042
  10. IDURSULFASE [Suspect]
     Active Substance: IDURSULFASE
     Dosage: UNK
     Route: 042
  11. IDURSULFASE [Suspect]
     Active Substance: IDURSULFASE
     Dosage: UNK UNK, 1/WEEK
     Route: 042
  12. IDURSULFASE [Suspect]
     Active Substance: IDURSULFASE
     Dosage: UNK UNK, 1/WEEK
     Route: 042
  13. IDURSULFASE [Suspect]
     Active Substance: IDURSULFASE
     Dosage: UNK
     Route: 042
  14. IDURSULFASE [Suspect]
     Active Substance: IDURSULFASE
     Dosage: UNK UNK, 1/WEEK
     Route: 042
  15. IDURSULFASE [Suspect]
     Active Substance: IDURSULFASE
     Dosage: UNK UNK, 1/WEEK
     Route: 042
  16. IDURSULFASE [Suspect]
     Active Substance: IDURSULFASE
     Dosage: 4 DOSAGE FORM
     Route: 065
  17. IDURSULFASE [Suspect]
     Active Substance: IDURSULFASE
     Dosage: 4 DOSAGE FORM
     Route: 065

REACTIONS (51)
  - Respiration abnormal [Recovered/Resolved]
  - General physical health deterioration [Recovered/Resolved]
  - Furuncle [Recovering/Resolving]
  - Generalised tonic-clonic seizure [Recovered/Resolved]
  - Blindness [Recovering/Resolving]
  - Seizure [Recovering/Resolving]
  - Pneumonia [Unknown]
  - Tachypnoea [Recovering/Resolving]
  - Dyspnoea [Recovered/Resolved]
  - Oxygen saturation decreased [Not Recovered/Not Resolved]
  - COVID-19 [Recovered/Resolved]
  - Pilonidal disease [Recovering/Resolving]
  - Respiratory disorder [Recovering/Resolving]
  - Aspiration [Recovered/Resolved]
  - Faecaloma [Recovered/Resolved]
  - Respiratory distress [Recovering/Resolving]
  - Respiratory failure [Recovered/Resolved]
  - Rash erythematous [Recovering/Resolving]
  - Rash [Recovering/Resolving]
  - Stoma site discharge [Recovered/Resolved]
  - Rhinorrhoea [Unknown]
  - Pain [Recovering/Resolving]
  - Stoma site erythema [Unknown]
  - Stoma site oedema [Unknown]
  - Bronchitis [Recovering/Resolving]
  - Oedema [Recovered/Resolved]
  - Secretion discharge [Unknown]
  - Nasopharyngitis [Recovering/Resolving]
  - Rhinitis [Not Recovered/Not Resolved]
  - Administration site extravasation [Recovered/Resolved]
  - Infusion site induration [Unknown]
  - Discouragement [Recovered/Resolved]
  - Obstructive airways disorder [Recovering/Resolving]
  - Increased upper airway secretion [Recovering/Resolving]
  - Road traffic accident [Recovering/Resolving]
  - Contusion [Recovering/Resolving]
  - Upper respiratory tract infection [Recovering/Resolving]
  - Nasal congestion [Recovering/Resolving]
  - Productive cough [Recovering/Resolving]
  - Limb injury [Recovering/Resolving]
  - Muscle rigidity [Recovered/Resolved]
  - Musculoskeletal stiffness [Recovered/Resolved]
  - Body temperature increased [Recovered/Resolved]
  - Eye discharge [Recovering/Resolving]
  - Restlessness [Recovered/Resolved]
  - Hyperhidrosis [Recovered/Resolved]
  - Hypertension [Recovered/Resolved]
  - Tachycardia [Recovered/Resolved]
  - Erythema [Recovered/Resolved]
  - Cyanosis [Recovered/Resolved]
  - Pyrexia [Recovering/Resolving]

NARRATIVE: CASE EVENT DATE: 20210531
